FAERS Safety Report 9391558 (Version 4)
Quarter: 2014Q2

REPORT INFORMATION
  Report Type: Spontaneous
  Country: FR (occurrence: FR)
  Receive Date: 20130709
  Receipt Date: 20140402
  Transmission Date: 20141212
  Serious: Yes (Other)
  Sender: FDA-Public Use
  Company Number: FR-TEVA-417211ISR

PATIENT
  Age: 25 Year
  Sex: Male
  Weight: 95 kg

DRUGS (1)
  1. COPAXONE [Suspect]
     Indication: MULTIPLE SCLEROSIS
     Dosage: WITH THE AUTOJECT
     Route: 058
     Dates: start: 20121227

REACTIONS (10)
  - Deafness [Recovered/Resolved]
  - Visual impairment [Recovered/Resolved]
  - Hot flush [Recovered/Resolved]
  - Dizziness [Recovered/Resolved]
  - Pain [Recovered/Resolved]
  - Chest discomfort [Recovered/Resolved]
  - Oral dysaesthesia [Recovered/Resolved]
  - Tinnitus [Recovered/Resolved]
  - Fatigue [Unknown]
  - Immediate post-injection reaction [Recovered/Resolved]
